FAERS Safety Report 24528443 (Version 1)
Quarter: 2024Q4

REPORT INFORMATION
  Report Type: Spontaneous
  Country: US (occurrence: US)
  Receive Date: 20241021
  Receipt Date: 20241021
  Transmission Date: 20250114
  Serious: Yes (Other)
  Sender: Haleon PLC
  Company Number: US-HALEON-2203251

PATIENT

DRUGS (1)
  1. CITRUCEL [Suspect]
     Active Substance: METHYLCELLULOSE (4000 CPS)
     Indication: Product used for unknown indication
     Dosage: EXPDATE ;202512

REACTIONS (1)
  - Diabetes mellitus [Unknown]
